FAERS Safety Report 22049337 (Version 6)
Quarter: 2023Q1

REPORT INFORMATION
  Report Type: Spontaneous
  Country: CA (occurrence: CA)
  Receive Date: 20230301
  Receipt Date: 20230328
  Transmission Date: 20230417
  Serious: Yes (Hospitalization, Other)
  Sender: FDA-Public Use
  Company Number: CA-PFIZER INC-202300087760

PATIENT
  Age: 46 Year
  Sex: Female

DRUGS (3)
  1. XELJANZ [Suspect]
     Active Substance: TOFACITINIB CITRATE
     Indication: Colitis ulcerative
     Dosage: 10 MG, 2X/DAY
     Route: 048
     Dates: start: 20230114
  2. XELJANZ [Suspect]
     Active Substance: TOFACITINIB CITRATE
     Dosage: 5 MG, 2X/DAY
     Route: 048
  3. PREDNISONE [Concomitant]
     Active Substance: PREDNISONE
     Dosage: 1 DF

REACTIONS (14)
  - Chest pain [Recovering/Resolving]
  - Dyspepsia [Recovering/Resolving]
  - Chest discomfort [Unknown]
  - Haematochezia [Unknown]
  - Drug ineffective [Unknown]
  - Fatigue [Not Recovered/Not Resolved]
  - Herpes virus infection [Unknown]
  - Genital herpes [Unknown]
  - Diarrhoea [Unknown]
  - Chills [Not Recovered/Not Resolved]
  - Nausea [Not Recovered/Not Resolved]
  - Malaise [Unknown]
  - Musculoskeletal pain [Unknown]
  - Discomfort [Unknown]

NARRATIVE: CASE EVENT DATE: 20230201
